FAERS Safety Report 8925461 (Version 7)
Quarter: 2013Q1

REPORT INFORMATION
  Report Type: Report from Study
  Country: FR (occurrence: FR)
  Receive Date: 20121126
  Receipt Date: 20130207
  Transmission Date: 20140127
  Serious: Yes (Life-Threatening, Hospitalization, Other)
  Sender: FDA-Public Use
  Company Number: FR-TEVA-365941USA

PATIENT
  Age: 69 Year
  Sex: Male
  Weight: 75 kg

DRUGS (7)
  1. TREANDA [Suspect]
     Indication: PRECURSOR B-LYMPHOBLASTIC LYMPHOMA
     Dosage: 70 MG/M2 DAILY; REGIMEN #1
     Route: 042
  2. TREANDA [Suspect]
     Dosage: 70 MG/M2 DAILY; REGIMEN #2
     Route: 041
     Dates: start: 20121011
  3. TREANDA [Suspect]
     Dosage: 70 MG/M2 DAILY; REGIMEN #3
     Route: 041
     Dates: start: 20121012
  4. OFATUMUMAB [Suspect]
     Indication: PRECURSOR B-LYMPHOBLASTIC LYMPHOMA
     Dosage: REGIMEN #1
     Route: 041
     Dates: start: 20120924
  5. OFATUMUMAB [Suspect]
     Dosage: REGIMEN #2
     Route: 041
     Dates: start: 20121010
  6. METHYLPREDNISOLONE [Concomitant]
     Dosage: 1000 MG/M2 DAILY;
     Route: 042
     Dates: start: 20120924, end: 20121012
  7. ZARZIO [Concomitant]
     Route: 058

REACTIONS (7)
  - Febrile neutropenia [Recovered/Resolved]
  - Pseudomonal sepsis [Recovered/Resolved]
  - Device related sepsis [Recovered/Resolved]
  - Subdural haematoma [Recovered/Resolved]
  - Febrile bone marrow aplasia [Not Recovered/Not Resolved]
  - Fall [Recovered/Resolved]
  - Wrist fracture [Recovered/Resolved]
